FAERS Safety Report 8113621-X (Version None)
Quarter: 2011Q4

REPORT INFORMATION
  Report Type: 
  Country: None (occurrence: None)
  Receive Date: 20111227
  Receipt Date: 20110915
  Transmission Date: 20120403
  Serious: Yes (Other)
  Sender: FDA-Public Use
  Company Number: PHEH2011US03009

PATIENT
  Age: 26 Year
  Sex: Female
  Weight: 50.8 kg

DRUGS (9)
  1. TIZANIDINE HCL [Concomitant]
  2. MORPHINE SULFATE [Concomitant]
  3. PEPCID [Concomitant]
  4. ORTHO CYCLEN-21 [Concomitant]
  5. GILENYA [Suspect]
     Indication: MULTIPLE SCLEROSIS
     Dosage: 0.5 MG, QD, ORAL
     Route: 048
     Dates: start: 20110413
  6. PROMETHAZINE [Concomitant]
  7. CITALOPRAM HYDROBROMIDE [Concomitant]
  8. GABAPENTIN [Concomitant]
  9. LYSINE [Concomitant]

REACTIONS (5)
  - LYMPHOCYTE COUNT DECREASED [None]
  - INFLUENZA LIKE ILLNESS [None]
  - WHITE BLOOD CELL COUNT DECREASED [None]
  - RASH ERYTHEMATOUS [None]
  - HEADACHE [None]
